FAERS Safety Report 7683432-8 (Version None)
Quarter: 2011Q3

REPORT INFORMATION
  Report Type: 
  Country: None (occurrence: None)
  Receive Date: 20110815
  Receipt Date: 20110804
  Transmission Date: 20111222
  Serious: Yes (Other)
  Sender: FDA-Public Use
  Company Number: US-ENDO PHARMACEUTICALS INC.-OPER20110189

PATIENT
  Sex: Female

DRUGS (3)
  1. OPANA ER [Suspect]
     Route: 048
  2. COCAINE [Suspect]
     Indication: DRUG ABUSE
     Dosage: UNK
     Route: 065
  3. MARIJUANA [Suspect]
     Indication: DRUG ABUSE
     Dosage: UNK

REACTIONS (2)
  - DRUG SCREEN POSITIVE [None]
  - DRUG ABUSE [None]
